FAERS Safety Report 23351411 (Version 1)
Quarter: 2023Q4

REPORT INFORMATION
  Report Type: Spontaneous
  Country: US (occurrence: None)
  Receive Date: 20231229
  Receipt Date: 20231229
  Transmission Date: 20240109
  Serious: Yes (Hospitalization)
  Sender: FDA-Public Use
  Company Number: None

PATIENT
  Age: 16 Year
  Sex: Female
  Weight: 50.3 kg

DRUGS (9)
  1. CYCLOPHOSPHAMIDE [Suspect]
     Active Substance: CYCLOPHOSPHAMIDE
  2. CYTARABINE [Concomitant]
  3. DEXAMETHASONE [Concomitant]
  4. DOXORUBICIN HYDROCHLORIDE [Concomitant]
  5. MERCAPTOPURINE [Concomitant]
  6. METHOTREXATE [Concomitant]
  7. PEG-L-ASPARAGINASE [Concomitant]
  8. THIOGUANINE (-TG) [Concomitant]
  9. VINCRISTINE SULFATE [Concomitant]

REACTIONS (1)
  - Spinal cord neoplasm [None]

NARRATIVE: CASE EVENT DATE: 20231214
